FAERS Safety Report 8231856-2 (Version None)
Quarter: 2012Q1

REPORT INFORMATION
  Report Type: 
  Country: None (occurrence: None)
  Receive Date: 20120320
  Receipt Date: 20120305
  Transmission Date: 20120608
  Serious: Yes (Hospitalization)
  Sender: FDA-Public Use
  Company Number: TW-007916

PATIENT
  Age: 80 Year
  Sex: Male
  Weight: 91 kg

DRUGS (4)
  1. TAMSULOSIN HCL [Concomitant]
  2. DEGARELIX (DEGARELIX) (240 MG, 80 MG) [Suspect]
     Indication: PROSTATE CANCER
     Dosage: (240 MG TOTAL SUBCUTANEOUS), (80 MG 1X/'MONTH SUBCUTANEOUS)
     Dates: start: 20111209, end: 20111209
  3. DEGARELIX (DEGARELIX) (240 MG, 80 MG) [Suspect]
     Indication: PROSTATE CANCER
     Dosage: (240 MG TOTAL SUBCUTANEOUS), (80 MG 1X/'MONTH SUBCUTANEOUS)
     Dates: start: 20111212
  4. ALFUZOSIN HCL [Concomitant]

REACTIONS (2)
  - OEDEMA PERIPHERAL [None]
  - BLOOD PRESSURE SYSTOLIC INCREASED [None]
